FAERS Safety Report 24908284 (Version 1)
Quarter: 2025Q1

REPORT INFORMATION
  Report Type: Spontaneous
  Country: IN (occurrence: IN)
  Receive Date: 20250131
  Receipt Date: 20250131
  Transmission Date: 20250409
  Serious: Yes (Hospitalization, Other)
  Sender: CADILA
  Company Number: IN-CPL-004946

PATIENT
  Age: 31 Year
  Sex: Male

DRUGS (1)
  1. METRONIDAZOLE [Suspect]
     Active Substance: METRONIDAZOLE
     Indication: Liver abscess
     Route: 048

REACTIONS (3)
  - Blindness cortical [Recovered/Resolved]
  - Anosognosia [Recovered/Resolved]
  - Toxicity to various agents [Recovered/Resolved]
